FAERS Safety Report 4767066-0 (Version None)
Quarter: 2005Q3

REPORT INFORMATION
  Report Type: 
  Country: None (occurrence: None)
  Receive Date: 20050908
  Receipt Date: 20050908
  Transmission Date: 20060218
  Serious: Yes (Hospitalization)
  Sender: FDA-Public Use
  Company Number: None

PATIENT
  Age: 90 Year
  Sex: Female
  Weight: 50.4 kg

DRUGS (5)
  1. CELEBREX [Suspect]
     Indication: OSTEOARTHRITIS
     Dosage: 200 MG PO QD[CHRONIC]
     Route: 048
  2. ASPIRIN [Suspect]
     Dosage: [CHRONIC]
  3. SYNTHROID [Concomitant]
  4. FLONASE [Concomitant]
  5. ADVAIR DISKUS 100/50 [Concomitant]

REACTIONS (6)
  - BODY TEMPERATURE INCREASED [None]
  - DYSPNOEA [None]
  - FATIGUE [None]
  - GASTRIC ULCER [None]
  - HIATUS HERNIA [None]
  - INFLUENZA LIKE ILLNESS [None]
